FAERS Safety Report 15646291 (Version 1)
Quarter: 2018Q4

REPORT INFORMATION
  Report Type: Spontaneous
  Country: ES (occurrence: ES)
  Receive Date: 20181122
  Receipt Date: 20181122
  Transmission Date: 20190205
  Serious: Yes (Hospitalization, Other)
  Sender: FDA-Public Use
  Company Number: ES-ACCORD-092893

PATIENT
  Age: 35 Year
  Sex: Male
  Weight: 108 kg

DRUGS (14)
  1. CYCLOPHOSPHAMIDE/CYCLOPHOSPHAMIDE MONOHYDRATE [Suspect]
     Active Substance: CYCLOPHOSPHAMIDE
     Indication: B-CELL LYMPHOMA
     Dosage: UNK UNK, UNKNOWN FREQ.
     Route: 065
  2. DEXAMETHASONE. [Concomitant]
     Active Substance: DEXAMETHASONE
     Indication: PREMEDICATION
     Route: 042
  3. ACICLOVIR [Concomitant]
     Active Substance: ACYCLOVIR
     Indication: PRODUCT USED FOR UNKNOWN INDICATION
     Route: 065
  4. PREDNISONE. [Suspect]
     Active Substance: PREDNISONE
     Indication: B-CELL LYMPHOMA
     Dosage: UNK UNK, UNKNOWN FREQ.
     Route: 065
  5. BENDAMUSTINE/BENDAMUSTINE HYDROCHLORIDE [Suspect]
     Active Substance: BENDAMUSTINE HYDROCHLORIDE
     Indication: PRODUCT USED FOR UNKNOWN INDICATION
     Dosage: FROM 16-FEB-2017 TO 17-FEB-2017.
     Route: 042
     Dates: start: 20170314, end: 20170315
  6. DOXORUBICIN [Suspect]
     Active Substance: DOXORUBICIN
     Indication: B-CELL LYMPHOMA
     Route: 065
  7. VINCRISTINE [Suspect]
     Active Substance: VINCRISTINE
     Indication: B-CELL LYMPHOMA
     Dosage: UNK UNK, UNKNOWN FREQ.
     Route: 065
  8. DEXCHLORPHENIRAMINE [Concomitant]
     Active Substance: DEXCHLORPHENIRAMINE
     Indication: PREMEDICATION
     Dosage: UNK UNK, UNKNOWN FREQ.
     Route: 042
  9. RITUXIMAB. [Suspect]
     Active Substance: RITUXIMAB
     Indication: B-CELL LYMPHOMA
     Dosage: 10-NOV-2015, 22-DEC-2015 AND 29-MAR-2016.
     Route: 042
     Dates: start: 20151020
  10. OMEPRAZOLE. [Concomitant]
     Active Substance: OMEPRAZOLE
     Indication: PROPHYLAXIS
     Route: 048
  11. SULFAMETHOXAZOLE/TRIMETHOPRIM [Concomitant]
     Active Substance: SULFAMETHOXAZOLE\TRIMETHOPRIM
     Indication: PRODUCT USED FOR UNKNOWN INDICATION
     Dosage: UNK, ONCE DAILY (ADMINISTERED ON MONDAY-WEDNESDAY-FRIDAY)
     Route: 065
  12. PARACETAMOL [Concomitant]
     Active Substance: ACETAMINOPHEN
     Indication: PREMEDICATION
     Route: 048
  13. ALLOPURINOL. [Concomitant]
     Active Substance: ALLOPURINOL
     Indication: PRODUCT USED FOR UNKNOWN INDICATION
     Route: 048
  14. OBINUTUZUMAB. [Suspect]
     Active Substance: OBINUTUZUMAB
     Indication: PRODUCT USED FOR UNKNOWN INDICATION
     Route: 042
     Dates: end: 20171114

REACTIONS (4)
  - Therapy non-responder [Unknown]
  - Infection [Recovered/Resolved]
  - B-cell lymphoma recurrent [Unknown]
  - Neutropenia [Recovered/Resolved with Sequelae]

NARRATIVE: CASE EVENT DATE: 20171120
